FAERS Safety Report 15722038 (Version 1)
Quarter: 2018Q4

REPORT INFORMATION
  Report Type: Spontaneous
  Country: PR (occurrence: PR)
  Receive Date: 20181214
  Receipt Date: 20181214
  Transmission Date: 20190205
  Serious: No
  Sender: FDA-Public Use
  Company Number: PR-BRISTOL-MYERS SQUIBB COMPANY-BMS-2018-117674

PATIENT
  Age: 25 Year
  Sex: Female

DRUGS (1)
  1. ORENCIA [Suspect]
     Active Substance: ABATACEPT
     Indication: RHEUMATOID ARTHRITIS
     Dosage: 125 MG, QWK
     Route: 058
     Dates: start: 20181212

REACTIONS (2)
  - Administration site discolouration [Not Recovered/Not Resolved]
  - Administration site swelling [Not Recovered/Not Resolved]

NARRATIVE: CASE EVENT DATE: 20181212
